FAERS Safety Report 10007943 (Version 2)
Quarter: 2014Q1

REPORT INFORMATION
  Report Type: Spontaneous
  Country: US (occurrence: US)
  Receive Date: 20140313
  Receipt Date: 20140313
  Transmission Date: 20141002
  Serious: Yes (Other)
  Sender: FDA-Public Use
  Company Number: US-GE HEALTHCARE MEDICAL DIAGNOSTICS-OSCN-PR-0902S-0088

PATIENT
  Sex: Female

DRUGS (4)
  1. OMNISCAN [Suspect]
     Indication: PRODUCT USED FOR UNKNOWN INDICATION
     Route: 042
     Dates: start: 20060220, end: 20060220
  2. OMNISCAN [Suspect]
     Route: 042
     Dates: start: 20060223, end: 20060223
  3. GADOLINIUM (UNSPECIFIED) [Suspect]
     Indication: PRODUCT USED FOR UNKNOWN INDICATION
     Route: 042
     Dates: start: 20060724, end: 20060724
  4. PROHANCE [Suspect]
     Indication: RENAL FAILURE
     Route: 042
     Dates: start: 20021005, end: 20021005

REACTIONS (1)
  - Nephrogenic systemic fibrosis [Not Recovered/Not Resolved]
